FAERS Safety Report 15938760 (Version 1)
Quarter: 2019Q1

REPORT INFORMATION
  Report Type: Report from Study
  Country: ES (occurrence: ES)
  Receive Date: 20190208
  Receipt Date: 20190208
  Transmission Date: 20190417
  Serious: Yes (Life-Threatening, Other)
  Sender: FDA-Public Use
  Company Number: ES-JNJFOC-20190141682

PATIENT

DRUGS (6)
  1. IBRUTINIB [Suspect]
     Active Substance: IBRUTINIB
     Indication: B-CELL PROLYMPHOCYTIC LEUKAEMIA
     Route: 065
  2. IBRUTINIB [Suspect]
     Active Substance: IBRUTINIB
     Indication: MANTLE CELL LYMPHOMA
     Route: 065
  3. IBRUTINIB [Suspect]
     Active Substance: IBRUTINIB
     Indication: DIFFUSE LARGE B-CELL LYMPHOMA
     Route: 065
  4. IBRUTINIB [Suspect]
     Active Substance: IBRUTINIB
     Indication: WALDENSTROM^S MACROGLOBULINAEMIA
     Route: 065
  5. IBRUTINIB [Suspect]
     Active Substance: IBRUTINIB
     Indication: B-CELL PROLYMPHOCYTIC LEUKAEMIA
     Route: 065
  6. IBRUTINIB [Suspect]
     Active Substance: IBRUTINIB
     Indication: CHRONIC LYMPHOCYTIC LEUKAEMIA
     Route: 065

REACTIONS (11)
  - Hepatic failure [Unknown]
  - Pneumocystis jirovecii pneumonia [Unknown]
  - Orchitis [Unknown]
  - Diarrhoea [Unknown]
  - Chest pain [Unknown]
  - Atrial fibrillation [Unknown]
  - Off label use [Unknown]
  - Respiratory tract infection [Unknown]
  - Muscle spasms [Unknown]
  - Oedema peripheral [Unknown]
  - Cardiac failure congestive [Unknown]
